FAERS Safety Report 4824306-7 (Version None)
Quarter: 2005Q4

REPORT INFORMATION
  Report Type: 
  Country: None (occurrence: None)
  Receive Date: 20051109
  Receipt Date: 20050912
  Transmission Date: 20060501
  Serious: Yes (Death, Life-Threatening, Hospitalization, Disabling, Other)
  Sender: FDA-Public Use
  Company Number: GB-MERCK-0509GBR00067

PATIENT
  Age: 84 Year
  Sex: Male
  Weight: 61 kg

DRUGS (6)
  1. ZETIA [Suspect]
     Indication: HYPERCHOLESTEROLAEMIA
     Route: 048
     Dates: start: 20050128, end: 20050228
  2. WARFARIN [Concomitant]
     Route: 065
     Dates: start: 19920610, end: 20050413
  3. FUROSEMIDE [Concomitant]
     Route: 065
     Dates: start: 20030214, end: 20050413
  4. PERINDOPRIL [Concomitant]
     Route: 065
     Dates: start: 20030423, end: 20050413
  5. ROSUVASTATIN CALCIUM [Concomitant]
     Route: 065
     Dates: start: 20040121, end: 20050413
  6. AMLODIPINE BESYLATE [Concomitant]
     Route: 065
     Dates: start: 20041101, end: 20050413

REACTIONS (3)
  - HAEMORRHAGE [None]
  - HIP FRACTURE [None]
  - INTERNATIONAL NORMALISED RATIO INCREASED [None]
